FAERS Safety Report 23935344 (Version 1)
Quarter: 2024Q2

REPORT INFORMATION
  Report Type: Spontaneous
  Country: FR (occurrence: FR)
  Receive Date: 20240604
  Receipt Date: 20240604
  Transmission Date: 20240716
  Serious: Yes (Life-Threatening, Hospitalization, Other)
  Sender: FDA-Public Use
  Company Number: None

PATIENT
  Age: 70 Year
  Sex: Female
  Weight: 55 kg

DRUGS (9)
  1. CLONAZEPAM [Suspect]
     Active Substance: CLONAZEPAM
     Indication: Delusional disorder, unspecified type
     Dosage: 6 TO 8 MG/D DEPENDING ON THE DAY?DAILY DOSE: 1 DOSAGE FORM
     Route: 048
     Dates: start: 20240322, end: 20240402
  2. CLONAZEPAM [Suspect]
     Active Substance: CLONAZEPAM
     Indication: Delusional disorder, unspecified type
     Dosage: DAILY DOSE: 4 MILLIGRAM
     Route: 048
     Dates: start: 20240403
  3. CLONAZEPAM [Suspect]
     Active Substance: CLONAZEPAM
     Indication: Delusional disorder, unspecified type
     Dosage: DAILY DOSE: 8 MILLIGRAM
     Route: 048
     Dates: start: 20240405
  4. CYAMEMAZINE [Suspect]
     Active Substance: CYAMEMAZINE
     Indication: Delusional disorder, unspecified type
     Dosage: 30 TO 35 MILLIGRAM EVERY 1 DAY(S) DEPENDING ON THE DAY?DAILY DOSE: 1 DOSAGE FORM
     Route: 048
     Dates: start: 20240403
  5. FENOFIBRATE [Concomitant]
     Active Substance: FENOFIBRATE
  6. FLUOXETINE HYDROCHLORIDE [Concomitant]
     Active Substance: FLUOXETINE HYDROCHLORIDE
  7. Carteol [Concomitant]
  8. NEFOPAM HYDROCHLORIDE [Concomitant]
     Active Substance: NEFOPAM HYDROCHLORIDE
  9. LEVOTHYROXINE [Concomitant]
     Active Substance: LEVOTHYROXINE\LEVOTHYROXINE SODIUM

REACTIONS (4)
  - Femoral neck fracture [Unknown]
  - Fall [Recovered/Resolved with Sequelae]
  - Asphyxia [Unknown]
  - Off label use [Unknown]

NARRATIVE: CASE EVENT DATE: 20240322
